FAERS Safety Report 8538946-5 (Version None)
Quarter: 2012Q3

REPORT INFORMATION
  Report Type: 
  Country: None (occurrence: None)
  Receive Date: 20120713
  Receipt Date: 20120702
  Transmission Date: 20120928
  Serious: Yes (Hospitalization)
  Sender: FDA-Public Use
  Company Number: 2012P1048114

PATIENT

DRUGS (1)
  1. MORPHINE [Suspect]
     Dosage: 55 MG;XL

REACTIONS (1)
  - INCORRECT DOSE ADMINISTERED BY DEVICE [None]
